FAERS Safety Report 6893711-X (Version None)
Quarter: 2010Q3

REPORT INFORMATION
  Report Type: 
  Country: None (occurrence: None)
  Receive Date: 20100801
  Receipt Date: 20100722
  Transmission Date: 20110219
  Serious: Yes (Death, Other)
  Sender: FDA-Public Use
  Company Number: JP-BRISTOL-MYERS SQUIBB COMPANY-15209315

PATIENT
  Age: 10 Year
  Sex: Female

DRUGS (6)
  1. VEPESID [Suspect]
     Indication: EWING'S SARCOMA
  2. VINCRISTINE SULFATE [Suspect]
     Indication: EWING'S SARCOMA
  3. DOXORUBICIN HCL [Suspect]
     Indication: EWING'S SARCOMA
  4. CYCLOPHOSPHAMIDE [Suspect]
     Indication: EWING'S SARCOMA
  5. IFOSFAMIDE [Suspect]
     Indication: EWING'S SARCOMA
  6. RADIATION THERAPY [Suspect]
     Indication: EWING'S SARCOMA

REACTIONS (6)
  - DELIRIUM [None]
  - FEBRILE NEUTROPENIA [None]
  - PULMONARY ALVEOLAR HAEMORRHAGE [None]
  - PULMONARY OEDEMA [None]
  - RESPIRATORY FAILURE [None]
  - SEPSIS [None]
